FAERS Safety Report 15981147 (Version 1)
Quarter: 2019Q1

REPORT INFORMATION
  Report Type: Spontaneous
  Country: US (occurrence: US)
  Receive Date: 20190218
  Receipt Date: 20190218
  Transmission Date: 20190418
  Serious: No
  Sender: FDA-Public Use
  Company Number: None

PATIENT
  Age: 48 Year
  Sex: Male
  Weight: 92.4 kg

DRUGS (1)
  1. PACLITAXEL. [Suspect]
     Active Substance: PACLITAXEL
     Indication: BREAST CANCER
     Route: 042

REACTIONS (5)
  - Infusion related reaction [None]
  - Dyspnoea [None]
  - Abdominal pain lower [None]
  - Nausea [None]
  - Blood pressure systolic increased [None]

NARRATIVE: CASE EVENT DATE: 20181212
